FAERS Safety Report 8867808 (Version 1)
Quarter: 2012Q4

REPORT INFORMATION
  Report Type: 
  Country: US (occurrence: US)
  Receive Date: 20121026
  Receipt Date: 20121026
  Transmission Date: 20130627
  Serious: No
  Sender: FDA-Public Use
  Company Number: US-AMGEN-USASP2012041422

PATIENT
  Age: 59 Year
  Sex: Female

DRUGS (9)
  1. ENBREL [Suspect]
     Indication: PRODUCT USED FOR UNKNOWN INDICATION
     Dosage: 50 mg, qwk
     Route: 058
  2. FOSAMAX [Concomitant]
     Dosage: 10 mg, UNK
  3. METHOTREXATE [Concomitant]
     Dosage: 2.5 mg, UNK
  4. ATENOLOL [Concomitant]
     Dosage: 25 mg, UNK
  5. IMITREX                            /01044801/ [Concomitant]
     Dosage: 25 mg, UNK
  6. FISH OIL [Concomitant]
     Dosage: UNK
  7. CALCIUM [Concomitant]
     Dosage: 500 UNK, UNK
  8. MULTIVITAMIN                       /00097801/ [Concomitant]
     Dosage: UNK
  9. FOLIC ACID [Concomitant]
     Dosage: UNK

REACTIONS (1)
  - Urinary tract infection [Unknown]
